FAERS Safety Report 6564001-X (Version None)
Quarter: 2010Q1

REPORT INFORMATION
  Report Type: 
  Country: None (occurrence: None)
  Receive Date: 20100131
  Receipt Date: 20100121
  Transmission Date: 20100710
  Serious: Yes (Hospitalization, Other)
  Sender: FDA-Public Use
  Company Number: AT-JNJFOC-20100108402

PATIENT
  Age: 24 Year
  Sex: Male

DRUGS (9)
  1. RISPERDAL [Suspect]
     Indication: DRUG USE FOR UNKNOWN INDICATION
     Route: 065
  2. RISPERDAL [Suspect]
     Route: 065
  3. RISPERDAL [Suspect]
     Route: 065
  4. RISPERDAL [Suspect]
     Route: 065
  5. RISPERDAL [Suspect]
     Route: 065
  6. ATARAX [Concomitant]
  7. TRESLEEN [Concomitant]
  8. TRESLEEN [Concomitant]
  9. SOLIAN [Concomitant]

REACTIONS (3)
  - DRY MOUTH [None]
  - POLYDIPSIA [None]
  - WEIGHT INCREASED [None]
